FAERS Safety Report 19695664 (Version 1)
Quarter: 2021Q3

REPORT INFORMATION
  Report Type: Spontaneous
  Country: US (occurrence: US)
  Receive Date: 20210812
  Receipt Date: 20210812
  Transmission Date: 20211014
  Serious: Yes (Disabling)
  Sender: FDA-Public Use
  Company Number: None

PATIENT
  Age: 38 Year
  Sex: Female
  Weight: 90 kg

DRUGS (17)
  1. VITAMIN D/K [Concomitant]
  2. FISH OIL [Concomitant]
     Active Substance: FISH OIL
  3. FEMPARIN [Concomitant]
  4. DIM [Concomitant]
  5. ZYRTEK [Concomitant]
     Active Substance: CETIRIZINE HYDROCHLORIDE
  6. NAC [Concomitant]
  7. DIGESTIZYME [Concomitant]
  8. MAGNESIUM [Concomitant]
     Active Substance: MAGNESIUM
  9. WELCHOL [Concomitant]
     Active Substance: COLESEVELAM HYDROCHLORIDE
  10. LDN [Concomitant]
     Active Substance: NALTREXONE
  11. BOWL SUPPORT PROBIOTIC [Concomitant]
  12. B VITAMINS [Concomitant]
     Active Substance: CYANOCOBALAMIN\DEXPANTHENOL\NIACINAMIDE\PYRIDOXINE HYDROCHLORIDE\RIBOFLAVIN 5^-PHOSPHATE SODIUM\THIAMINE HYDROCHLORIDE\VITAMIN B COMPLEX
  13. WELLBUTRIN [Suspect]
     Active Substance: BUPROPION HYDROCHLORIDE
     Indication: DEPRESSION
  14. EFFEXOR [Suspect]
     Active Substance: VENLAFAXINE HYDROCHLORIDE
     Indication: DEPRESSION
  15. VITEX [Concomitant]
  16. FEMDOPHILIS [Concomitant]
  17. EMERGENC E [Concomitant]

REACTIONS (3)
  - Body temperature increased [None]
  - Temperature intolerance [None]
  - Constipation [None]

NARRATIVE: CASE EVENT DATE: 20180120
